FAERS Safety Report 8966652 (Version 1)
Quarter: 2012Q4

REPORT INFORMATION
  Report Type: 
  Country: MX (occurrence: MX)
  Receive Date: 20121214
  Receipt Date: 20121214
  Transmission Date: 20130627
  Serious: Yes (Death)
  Sender: FDA-Public Use
  Company Number: MX-009507513-1003USA01023

PATIENT
  Age: 49 Year
  Sex: Male
  Weight: 94.5 kg

DRUGS (3)
  1. SITAGLIPTIN PHOSPHATE [Suspect]
     Dosage: 100 mg, qd
     Route: 048
     Dates: start: 20090602, end: 20100305
  2. PIOGLITAZONE HYDROCHLORIDE [Suspect]
     Indication: TYPE 2 DIABETES MELLITUS
     Dosage: 15 mg, qd
     Route: 048
     Dates: start: 20090602, end: 20100305
  3. PREGABALIN [Concomitant]
     Indication: TRIGEMINAL NEURALGIA
     Dosage: 112.5 mg, bid
     Route: 048
     Dates: start: 20090630, end: 20100305

REACTIONS (1)
  - Myocardial infarction [Fatal]
